FAERS Safety Report 23387213 (Version 2)
Quarter: 2024Q1

REPORT INFORMATION
  Report Type: Spontaneous
  Country: US (occurrence: US)
  Receive Date: 20240110
  Receipt Date: 20240320
  Transmission Date: 20240409
  Serious: Yes (Other)
  Sender: FDA-Public Use
  Company Number: US-BRISTOL-MYERS SQUIBB COMPANY-2024-003995

PATIENT
  Age: 64 Year
  Sex: Male

DRUGS (1)
  1. LENALIDOMIDE [Suspect]
     Active Substance: LENALIDOMIDE
     Indication: Plasma cell myeloma in remission
     Dosage: TAKE 1 CAPSULE (5MG TOTAL) WHOLE BY MOUTH ONCE DAILY WITH WATER 1 HOUR AFTER A MEAL EVERY DAY
     Route: 048
     Dates: start: 20230214

REACTIONS (1)
  - Meniere^s disease [Recovered/Resolved]
